FAERS Safety Report 12099868 (Version 3)
Quarter: 2016Q2

REPORT INFORMATION
  Report Type: Spontaneous
  Country: US (occurrence: US)
  Receive Date: 20160222
  Receipt Date: 20160425
  Transmission Date: 20160815
  Serious: Yes (Other)
  Sender: FDA-Public Use
  Company Number: US-PFIZER INC-2016083794

PATIENT
  Age: 87 Year
  Sex: Female

DRUGS (6)
  1. DORZOLAMIDE HCL-TIMOLOL MALEATE [Concomitant]
     Dosage: IN BOTH EYES THREE TIMES A DAY
     Route: 047
     Dates: start: 200709
  2. LEVOTHYROXINE. [Concomitant]
     Active Substance: LEVOTHYROXINE
     Indication: THYROID DISORDER
     Dosage: UNK
     Dates: start: 1994
  3. PHOSPHOLINE IODIDE [Suspect]
     Active Substance: ECHOTHIOPHATE IODIDE
     Indication: INTRAOCULAR PRESSURE FLUCTUATION
     Dosage: 1 GTT, 3X/DAY (ONLY IN THE RIGHT EYE)
     Route: 047
     Dates: start: 2012
  4. LUMIGAN [Concomitant]
     Active Substance: BIMATOPROST
     Dosage: AT NIGHT TIME IN BOTH EYES
     Route: 047
     Dates: start: 2003
  5. ALPHAGAN P [Concomitant]
     Active Substance: BRIMONIDINE TARTRATE
     Dosage: IN THE RIGHT EYE THREE TIMES A DAY
     Route: 047
     Dates: start: 201401
  6. SODIUM CHLORIDE. [Concomitant]
     Active Substance: SODIUM CHLORIDE
     Indication: PROPHYLAXIS
     Dosage: IN BOTH EYES THREE TIMES A DAY
     Route: 047
     Dates: start: 2012

REACTIONS (3)
  - Eye disorder [Recovered/Resolved]
  - Intraocular pressure increased [Recovered/Resolved]
  - Corneal disorder [Recovered/Resolved]

NARRATIVE: CASE EVENT DATE: 201404
